FAERS Safety Report 9595332 (Version 1)
Quarter: 2013Q3

REPORT INFORMATION
  Report Type: Spontaneous
  Country: US (occurrence: None)
  Receive Date: 20130927
  Receipt Date: 20130927
  Transmission Date: 20140515
  Serious: Yes (Other)
  Sender: FDA-Public Use
  Company Number: CABO-13002823

PATIENT
  Age: 46 Year
  Sex: Female
  Weight: 47 kg

DRUGS (1)
  1. COMETRIQ [Suspect]
     Indication: LUNG NEOPLASM MALIGNANT
     Dosage: 60 MG, QD, ORAL
     Route: 048
     Dates: start: 20130515, end: 20130605

REACTIONS (3)
  - Platelet count decreased [None]
  - Asthenia [None]
  - Neutropenia [None]
